FAERS Safety Report 13008387 (Version 2)
Quarter: 2016Q4

REPORT INFORMATION
  Report Type: Spontaneous
  Country: PL (occurrence: PL)
  Receive Date: 20161208
  Receipt Date: 20161214
  Transmission Date: 20170207
  Serious: Yes (Hospitalization)
  Sender: FDA-Public Use
  Company Number: PHHY2016PL164961

PATIENT
  Age: 2 Year
  Sex: Male

DRUGS (2)
  1. PREDNISONE. [Suspect]
     Active Substance: PREDNISONE
     Indication: JUVENILE IDIOPATHIC ARTHRITIS
     Route: 065
  2. METHOTREXATE. [Suspect]
     Active Substance: METHOTREXATE
     Indication: JUVENILE IDIOPATHIC ARTHRITIS
     Route: 065

REACTIONS (7)
  - Thrombocytopenia [Unknown]
  - Arthralgia [Unknown]
  - Apathy [Unknown]
  - Asthenia [Unknown]
  - Anaemia [Unknown]
  - Gait disturbance [Unknown]
  - Pallor [Unknown]
